FAERS Safety Report 25421514 (Version 2)
Quarter: 2025Q3

REPORT INFORMATION
  Report Type: Other
  Country: EU (occurrence: EU)
  Receive Date: 20250611
  Receipt Date: 20250709
  Transmission Date: 20251020
  Serious: Yes (Hospitalization, Other)
  Sender: ALVOGEN
  Company Number: EU-ALVOGEN-2025098143

PATIENT
  Age: 50 Year
  Sex: Female

DRUGS (1)
  1. LEVOTHYROXINE [Suspect]
     Active Substance: LEVOTHYROXINE
     Indication: Supplementation therapy

REACTIONS (5)
  - Embolism [Recovered/Resolved]
  - Thyrotoxic cardiomyopathy [Recovered/Resolved]
  - Pulmonary embolism [Unknown]
  - Cardiogenic shock [Recovered/Resolved]
  - Cardiac failure acute [Recovered/Resolved]
